FAERS Safety Report 7147888-1 (Version None)
Quarter: 2010Q4

REPORT INFORMATION
  Report Type: 
  Country: None (occurrence: None)
  Receive Date: 20101209
  Receipt Date: 20101202
  Transmission Date: 20110411
  Serious: Yes (Hospitalization)
  Sender: FDA-Public Use
  Company Number: JP-JNJFOC-20100806211

PATIENT
  Sex: Female
  Weight: 55 kg

DRUGS (11)
  1. RISPERDAL [Suspect]
     Indication: SCHIZOPHRENIA
     Route: 048
  2. RISPERDAL [Suspect]
     Route: 048
  3. TOPIRAMATE [Suspect]
     Indication: EPILEPSY
     Route: 048
  4. PREDNISOLONE [Concomitant]
     Indication: MYASTHENIA GRAVIS
     Route: 048
  5. EXCEGRAN [Concomitant]
     Indication: EPILEPSY
     Route: 048
  6. GASTER D [Concomitant]
     Indication: MYASTHENIA GRAVIS
     Route: 048
  7. PURSENNID [Concomitant]
     Indication: CONSTIPATION
     Route: 048
  8. LENDORMIN D [Concomitant]
     Indication: SCHIZOPHRENIA
     Route: 048
  9. AMOBAN [Concomitant]
     Indication: SCHIZOPHRENIA
     Route: 048
  10. NOVORAPID [Concomitant]
     Indication: DIABETES MELLITUS
     Route: 058
  11. LEVEMIR [Concomitant]
     Indication: DIABETES MELLITUS
     Route: 058

REACTIONS (4)
  - LOSS OF CONSCIOUSNESS [None]
  - PYREXIA [None]
  - RHABDOMYOLYSIS [None]
  - TONIC CONVULSION [None]
